FAERS Safety Report 24165997 (Version 2)
Quarter: 2024Q3

REPORT INFORMATION
  Report Type: Spontaneous
  Country: US (occurrence: US)
  Receive Date: 20240802
  Receipt Date: 20240827
  Transmission Date: 20241017
  Serious: Yes (Other)
  Sender: ACCORD
  Company Number: US-Accord-429925

PATIENT
  Age: 72 Year
  Sex: Female

DRUGS (5)
  1. CARBOPLATIN [Suspect]
     Active Substance: CARBOPLATIN
     Indication: Ovarian cancer
     Dates: start: 20210930, end: 20220210
  2. DOCETAXEL [Suspect]
     Active Substance: DOCETAXEL\DOCETAXEL ANHYDROUS
     Indication: Product used for unknown indication
     Dosage: DOCETAXEL INJ. CONC.?2 OR 3 WEEKS ON; 1 WEEK OFF, C1-C4: 64MG?C5-C13: 60MG
     Dates: start: 20210930, end: 20220210
  3. TAXOL [Suspect]
     Active Substance: PACLITAXEL
     Indication: Ovarian cancer
  4. CARBOPLATIN [Suspect]
     Active Substance: CARBOPLATIN
     Indication: Ovarian cancer
     Dosage: PLANNED LAST TREATMENT IS 15-AUG-2024
     Dates: start: 20240306
  5. DOCETAXEL [Suspect]
     Active Substance: DOCETAXEL\DOCETAXEL ANHYDROUS
     Indication: Product used for unknown indication
     Dosage: DOCETAXEL INJ. CONC.?2 OR 3 WEEKS ON; 1 WEEK OFF, C1-C4: 64MG?C5-C13: 60MG,
     Dates: start: 20240306

REACTIONS (4)
  - Lacrimal structure injury [Not Recovered/Not Resolved]
  - Dry eye [Recovered/Resolved]
  - Off label use [Unknown]
  - Dacryostenosis acquired [Not Recovered/Not Resolved]

NARRATIVE: CASE EVENT DATE: 20210101
